FAERS Safety Report 25169948 (Version 11)
Quarter: 2025Q3

REPORT INFORMATION
  Report Type: Spontaneous
  Country: US (occurrence: US)
  Receive Date: 20250407
  Receipt Date: 20250815
  Transmission Date: 20251021
  Serious: Yes (Hospitalization, Other)
  Sender: ALEXION PHARMACEUTICALS
  Company Number: US-ASTRAZENECA-202503USA004866US

PATIENT
  Age: 78 Year
  Sex: Male
  Weight: 125 kg

DRUGS (22)
  1. ROSUVASTATIN [Concomitant]
     Active Substance: ROSUVASTATIN
  2. VUDALIMAB [Suspect]
     Active Substance: VUDALIMAB
     Indication: Adenocarcinoma
     Dates: start: 20250108, end: 20250108
  3. VUDALIMAB [Suspect]
     Active Substance: VUDALIMAB
     Dates: start: 20250204, end: 20250204
  4. DOCETAXEL [Suspect]
     Active Substance: DOCETAXEL
     Indication: Adenocarcinoma
     Dosage: 180 MILLIGRAM, Q3W
     Dates: start: 20250108, end: 20250108
  5. DOCETAXEL [Suspect]
     Active Substance: DOCETAXEL
     Dosage: 180 MILLIGRAM, Q3W
     Dates: start: 20250129, end: 20250129
  6. FARXIGA [Concomitant]
     Active Substance: DAPAGLIFLOZIN PROPANEDIOL
     Route: 065
  7. ESOMEPRAZOLE [Concomitant]
     Active Substance: ESOMEPRAZOLE
     Route: 065
  8. PEGFILGRASTIM [Concomitant]
     Active Substance: PEGFILGRASTIM
     Route: 065
  9. ASPIRIN [Concomitant]
     Active Substance: ASPIRIN
     Route: 065
  10. ATENOLOL [Concomitant]
     Active Substance: ATENOLOL
     Route: 065
  11. Adult multivitamin [Concomitant]
     Route: 065
  12. BENICAR [Concomitant]
     Active Substance: OLMESARTAN MEDOXOMIL
     Route: 065
  13. FENOFIBRATE [Concomitant]
     Active Substance: FENOFIBRATE
     Route: 065
  14. NIACIN [Concomitant]
     Active Substance: NIACIN
     Route: 065
  15. SYNTHROID [Concomitant]
     Active Substance: LEVOTHYROXINE SODIUM
     Route: 065
     Dates: start: 20190109, end: 20250210
  16. SINGULAIR [Concomitant]
     Active Substance: MONTELUKAST SODIUM
     Route: 065
  17. LEUPROLIDE [Concomitant]
     Active Substance: LEUPROLIDE
     Route: 065
  18. ANASTROZOLE [Concomitant]
     Active Substance: ANASTROZOLE
     Route: 065
  19. DEXAMETHASONE [Concomitant]
     Active Substance: DEXAMETHASONE
     Route: 065
  20. HYDROXYZINE [Concomitant]
     Active Substance: HYDROXYZINE HYDROCHLORIDE
     Route: 065
  21. PREDNISONE [Concomitant]
     Active Substance: PREDNISONE
     Route: 065
     Dates: start: 20250211, end: 20250217
  22. AZELASTINE [Concomitant]
     Active Substance: AZELASTINE
     Route: 065

REACTIONS (44)
  - Sepsis [Recovered/Resolved]
  - Device occlusion [Recovered/Resolved]
  - Urinary tract obstruction [Unknown]
  - Ureteric dilatation [Unknown]
  - Pelvic inflammatory disease [Unknown]
  - Hyperthyroidism [Unknown]
  - Malignant neoplasm progression [Unknown]
  - Diabetes mellitus [Unknown]
  - Erectile dysfunction [Unknown]
  - Nephrolithiasis [Unknown]
  - Acute kidney injury [Recovered/Resolved]
  - Pyelonephritis [Unknown]
  - Hypothyroidism [Unknown]
  - Hypokalaemia [Unknown]
  - Bladder obstruction [Unknown]
  - Abdominal pain [Unknown]
  - White blood cell count decreased [Recovered/Resolved]
  - Neutrophil count decreased [Recovered/Resolved]
  - Rash maculo-papular [Unknown]
  - Pruritus [Unknown]
  - Bladder hypertrophy [Unknown]
  - Nausea [Unknown]
  - Hyponatraemia [Recovered/Resolved]
  - Blood creatinine increased [Recovered/Resolved]
  - Vomiting [Unknown]
  - Cardiac disorder [Unknown]
  - Sleep apnoea syndrome [Unknown]
  - Hyperlipidaemia [Unknown]
  - Hypogonadism [Unknown]
  - Libido decreased [Unknown]
  - Rhinitis allergic [Unknown]
  - Gynaecomastia [Unknown]
  - Gastrooesophageal reflux disease [Unknown]
  - Hypertension [Unknown]
  - Nocturia [Unknown]
  - Asthenia [Unknown]
  - Atelectasis [Unknown]
  - Painful ejaculation [Unknown]
  - Neoplasm [Unknown]
  - Colitis [Unknown]
  - Atelectasis [Unknown]
  - Hydronephrosis [Unknown]
  - Antimicrobial susceptibility test resistant [Unknown]
  - Asthenia [Unknown]

NARRATIVE: CASE EVENT DATE: 20250203
